FAERS Safety Report 4276238-3 (Version None)
Quarter: 2004Q1

REPORT INFORMATION
  Report Type: 
  Country: None (occurrence: None)
  Receive Date: 20040121
  Receipt Date: 20031008
  Transmission Date: 20041129
  Serious: No
  Sender: FDA-Public Use
  Company Number: US-GLAXOSMITHKLINE-A0429540A

PATIENT
  Age: 57 Year
  Sex: Female

DRUGS (6)
  1. VENTOLIN [Suspect]
     Indication: ASTHMA
     Dosage: 2PUFF FIVE TIMES PER DAY
     Route: 055
  2. PULMICORT [Concomitant]
  3. SINGULAIR [Concomitant]
  4. PRILOSEC [Concomitant]
  5. PREMARIN [Concomitant]
  6. TRAZODONE HCL [Concomitant]

REACTIONS (1)
  - DRUG INEFFECTIVE [None]
